FAERS Safety Report 24670095 (Version 1)
Quarter: 2024Q4

REPORT INFORMATION
  Report Type: Spontaneous
  Country: RU (occurrence: RU)
  Receive Date: 20241127
  Receipt Date: 20241127
  Transmission Date: 20250114
  Serious: Yes (Other)
  Sender: GLAND PHARMA LTD
  Company Number: RU-GLANDPHARMA-RU-2024GLNLIT01036

PATIENT
  Age: 37 Year
  Sex: Female

DRUGS (4)
  1. DOXORUBICIN HYDROCHLORIDE [Suspect]
     Active Substance: DOXORUBICIN HYDROCHLORIDE
     Indication: Hodgkin^s disease
     Dosage: UP TO 6 COURSES
     Route: 042
     Dates: start: 20231117
  2. BRENTUXIMAB VEDOTIN [Suspect]
     Active Substance: BRENTUXIMAB VEDOTIN
     Indication: Hodgkin^s disease
     Dosage: UP TO 6 COURSES
     Route: 042
     Dates: start: 20231117
  3. VINBLASTINE [Suspect]
     Active Substance: VINBLASTINE
     Indication: Hodgkin^s disease
     Dosage: UP TO 6 COURSES
     Route: 042
     Dates: start: 20231117
  4. DACARBAZINE [Suspect]
     Active Substance: DACARBAZINE
     Indication: Hodgkin^s disease
     Dosage: UP TO 6 COURSES
     Route: 042
     Dates: start: 20231117

REACTIONS (1)
  - Hepatotoxicity [Recovered/Resolved]
